FAERS Safety Report 6185700-8 (Version None)
Quarter: 2009Q2

REPORT INFORMATION
  Report Type: 
  Country: None (occurrence: None)
  Receive Date: 20090507
  Receipt Date: 20090428
  Transmission Date: 20091009
  Serious: Yes (Other)
  Sender: FDA-Public Use
  Company Number: 430021M09USA

PATIENT
  Age: 45 Year
  Sex: Female

DRUGS (8)
  1. NOVANTRONE [Suspect]
     Indication: MULTIPLE SCLEROSIS
     Dosage: 12 MG/M2
     Dates: start: 20070101, end: 20070101
  2. COPAXONE [Concomitant]
  3. AMANTADINE HCL [Concomitant]
  4. BACLOFEN [Concomitant]
  5. PROVIGIL [Concomitant]
  6. SINGULAIR (MONTELUKAST /01362601/) [Concomitant]
  7. NORTRIPTYLINE (NORTRIPTYLINE /00006501/) [Concomitant]
  8. VALIUM [Concomitant]

REACTIONS (1)
  - EJECTION FRACTION DECREASED [None]
